FAERS Safety Report 11097432 (Version 1)
Quarter: 2015Q2

REPORT INFORMATION
  Report Type: Spontaneous
  Country: US (occurrence: US)
  Receive Date: 20150507
  Receipt Date: 20150507
  Transmission Date: 20150821
  Serious: No
  Sender: FDA-Public Use
  Company Number: US-GLAXOSMITHKLINE-US2015033849

PATIENT
  Age: 57 Year
  Sex: Female

DRUGS (2)
  1. ABREVA [Suspect]
     Active Substance: DOCOSANOL
     Indication: ORAL HERPES
     Dosage: UNK
     Dates: start: 20150310
  2. ABREVA [Suspect]
     Active Substance: DOCOSANOL
     Dosage: UNK

REACTIONS (3)
  - Drug administration error [Unknown]
  - Oral herpes [Not Recovered/Not Resolved]
  - Acne [Unknown]
